FAERS Safety Report 4293906-8 (Version None)
Quarter: 2004Q1

REPORT INFORMATION
  Report Type: 
  Country: None (occurrence: None)
  Receive Date: 20040212
  Receipt Date: 20040212
  Transmission Date: 20041129
  Serious: Yes (Death)
  Sender: FDA-Public Use
  Company Number: None

PATIENT
  Sex: Male
  Weight: 62.6 kg

DRUGS (14)
  1. CYTOXAN [Suspect]
     Indication: PANCREATIC CARCINOMA METASTATIC
     Dosage: 50 MG Q DAY ORAL
     Route: 048
     Dates: start: 20040112, end: 20040127
  2. OXYCODONE HCL [Concomitant]
  3. NORCO [Concomitant]
  4. VITAMIN B [Concomitant]
  5. VIT C [Concomitant]
  6. VIT E [Concomitant]
  7. CORAL CALICUIM [Concomitant]
  8. HUMULIN 70/30 [Concomitant]
  9. SENNA [Concomitant]
  10. COLACE [Concomitant]
  11. SIMETHICONE [Concomitant]
  12. LIPRAM [Concomitant]
  13. ENSURE [Concomitant]
  14. MEGACE [Concomitant]

REACTIONS (5)
  - ABDOMINAL PAIN [None]
  - COMA [None]
  - HYPOTENSION [None]
  - PYREXIA [None]
  - SEDATION [None]
